FAERS Safety Report 21344490 (Version 2)
Quarter: 2022Q3

REPORT INFORMATION
  Report Type: Spontaneous
  Country: DE (occurrence: DE)
  Receive Date: 20220916
  Receipt Date: 20220920
  Transmission Date: 20221026
  Serious: Yes (Hospitalization)
  Sender: FDA-Public Use
  Company Number: DE-002147023-NVSC2022DE206986

PATIENT

DRUGS (2)
  1. RUXOLITINIB [Suspect]
     Active Substance: RUXOLITINIB
     Indication: Product used for unknown indication
     Dosage: 10 MG, BID (1-0-1)
     Route: 065
     Dates: end: 202208
  2. RUXOLITINIB [Suspect]
     Active Substance: RUXOLITINIB
     Dosage: 10 MG, BID (1-0-1)
     Route: 065
     Dates: start: 202209

REACTIONS (7)
  - Acidosis [Recovering/Resolving]
  - Acute respiratory failure [Unknown]
  - Drug withdrawal syndrome [Unknown]
  - Infection [Unknown]
  - White blood cell count increased [Unknown]
  - Product dose omission issue [Unknown]
  - Platelet count increased [Unknown]

NARRATIVE: CASE EVENT DATE: 20220101
